FAERS Safety Report 7270257-0 (Version None)
Quarter: 2011Q1

REPORT INFORMATION
  Report Type: 
  Country: None (occurrence: None)
  Receive Date: 20110202
  Receipt Date: 20110124
  Transmission Date: 20110831
  Serious: No
  Sender: FDA-Public Use
  Company Number: US-B.I. PHARMACEUTICALS,INC./RIDGEFIELD-2010-BP-14773BP

PATIENT
  Sex: Male

DRUGS (4)
  1. TESTOSTERONE [Concomitant]
  2. SPIRIVA [Suspect]
     Indication: CHRONIC OBSTRUCTIVE PULMONARY DISEASE
     Dosage: 18 MCG
     Route: 055
     Dates: start: 20090101
  3. VENTOLIN HFA [Concomitant]
  4. ALBUTEROL [Concomitant]

REACTIONS (5)
  - OROPHARYNGEAL PAIN [None]
  - DYSPNOEA [None]
  - DRY MOUTH [None]
  - PRURITUS [None]
  - RHINORRHOEA [None]
